FAERS Safety Report 12788132 (Version 1)
Quarter: 2016Q3

REPORT INFORMATION
  Report Type: Spontaneous
  Country: US (occurrence: US)
  Receive Date: 20160928
  Receipt Date: 20160928
  Transmission Date: 20161109
  Serious: No
  Sender: FDA-Public Use
  Company Number: US-TEVA-644797USA

PATIENT
  Sex: Male

DRUGS (2)
  1. TRI-SPRINTEC [Suspect]
     Active Substance: ETHINYL ESTRADIOL\NORGESTIMATE
     Indication: CONTRACEPTION
     Route: 065
  2. CLARAVIS [Concomitant]
     Active Substance: ISOTRETINOIN
     Dates: start: 20151231

REACTIONS (4)
  - Hypersensitivity [Unknown]
  - Abdominal distension [Unknown]
  - Discomfort [Unknown]
  - Swelling face [Unknown]

NARRATIVE: CASE EVENT DATE: 2016
